FAERS Safety Report 8502731-0 (Version None)
Quarter: 2012Q3

REPORT INFORMATION
  Report Type: 
  Country: None (occurrence: None)
  Receive Date: 20120706
  Receipt Date: 20120706
  Transmission Date: 20120928
  Serious: Yes (Death)
  Sender: FDA-Public Use
  Company Number: None

PATIENT
  Age: 48 Year
  Sex: Female
  Weight: 55.3388 kg

DRUGS (1)
  1. METHADON HCL ELX [Suspect]
     Indication: PAIN
     Dosage: 10 MG

REACTIONS (1)
  - DEATH [None]
